FAERS Safety Report 13027494 (Version 1)
Quarter: 2016Q4

REPORT INFORMATION
  Report Type: Spontaneous
  Country: US (occurrence: US)
  Receive Date: 20161214
  Receipt Date: 20161214
  Transmission Date: 20170207
  Serious: No
  Sender: FDA-Public Use
  Company Number: US-DUSA PHARMACEUTICALS, INC.-1060773

PATIENT
  Age: 68 Year

DRUGS (6)
  1. LEVULAN KERASTICK [Suspect]
     Active Substance: AMINOLEVULINIC ACID HYDROCHLORIDE
     Indication: ACTINIC KERATOSIS
     Route: 061
     Dates: start: 20160321, end: 20160321
  2. DOCUSATE SODIUM. [Concomitant]
     Active Substance: DOCUSATE SODIUM
  3. 81 MG LOW DOSE ASPIRIN [Concomitant]
     Active Substance: ASPIRIN
  4. MUCINEX [Concomitant]
     Active Substance: GUAIFENESIN
  5. OMEPRAZOLE. [Concomitant]
     Active Substance: OMEPRAZOLE
  6. ESBRIET [Concomitant]
     Active Substance: PIRFENIDONE

REACTIONS (6)
  - Application site erythema [Recovered/Resolved]
  - Paraesthesia [Recovered/Resolved]
  - Application site vesicles [Recovered/Resolved]
  - Application site exfoliation [Recovered/Resolved]
  - Application site pain [Recovered/Resolved]
  - Application site scab [Recovered/Resolved]

NARRATIVE: CASE EVENT DATE: 20160321
